FAERS Safety Report 4501987-9 (Version None)
Quarter: 2004Q4

REPORT INFORMATION
  Report Type: 
  Country: None (occurrence: None)
  Receive Date: 20041115
  Receipt Date: 20041115
  Transmission Date: 20050328
  Serious: No
  Sender: FDA-Public Use
  Company Number: None

PATIENT
  Age: 35 Year
  Sex: Female
  Weight: 58.9676 kg

DRUGS (1)
  1. VIOXX [Suspect]
     Indication: INTERVERTEBRAL DISC PROTRUSION
     Dosage: 25MG 1X DAILY ORAL
     Route: 048
     Dates: start: 20001001, end: 20041001

REACTIONS (2)
  - DYSPNOEA [None]
  - PALPITATIONS [None]
